FAERS Safety Report 7755728-2 (Version None)
Quarter: 2011Q3

REPORT INFORMATION
  Report Type: 
  Country: None (occurrence: None)
  Receive Date: 20110916
  Receipt Date: 20110907
  Transmission Date: 20111222
  Serious: Yes (Hospitalization, Disabling, Other)
  Sender: FDA-Public Use
  Company Number: PHEH2007US12546

PATIENT
  Sex: Female

DRUGS (28)
  1. NYSTATIN [Concomitant]
  2. REVLIMID [Concomitant]
     Dosage: 1 DF, QD
  3. TRILISATE [Concomitant]
  4. HYDROCODONE [Concomitant]
     Dosage: 5 MG, Q6H
     Route: 048
  5. AMBIEN [Concomitant]
     Dosage: 5 MG, QHS PRN
  6. TEMAZEPAM [Concomitant]
  7. PREDNISONE [Concomitant]
  8. IBUPROFEN [Concomitant]
  9. VICODIN [Concomitant]
  10. ZITHROMAX [Concomitant]
     Dosage: 500 MG, QD
     Route: 048
  11. ACETAMINOPHEN [Concomitant]
  12. LEXAPRO [Concomitant]
  13. ASPIRIN [Concomitant]
  14. COLACE [Concomitant]
  15. LEVAQUIN [Concomitant]
     Dosage: 500 MG, QD
     Route: 048
  16. SENOKOT                                 /UNK/ [Concomitant]
     Route: 048
  17. ZITHROMAX [Concomitant]
     Dosage: 250 MG, QD
     Route: 048
  18. LYRICA [Concomitant]
     Dosage: 75 MG, BID
     Route: 048
  19. ZOLPIDEM [Concomitant]
     Dosage: 5 MG, QHS
     Route: 048
  20. LIDODERM [Concomitant]
  21. ALKERAN [Concomitant]
  22. AREDIA [Suspect]
     Dosage: 90 MG, UNK
     Route: 042
  23. DECADRON [Concomitant]
  24. LOVENOX [Concomitant]
     Dosage: 40 MG, UNK
     Route: 058
  25. THALIDOMIDE [Concomitant]
  26. ZOMETA [Suspect]
     Dates: end: 20060101
  27. XANAX [Concomitant]
     Dosage: 0.5 MG, PRN
  28. OXYCONTIN [Concomitant]

REACTIONS (63)
  - DEFORMITY [None]
  - EMOTIONAL DISTRESS [None]
  - PNEUMONIA [None]
  - COUGH [None]
  - OPEN WOUND [None]
  - SWELLING FACE [None]
  - PARAPROTEINAEMIA [None]
  - MALAISE [None]
  - DECREASED APPETITE [None]
  - BACK PAIN [None]
  - OSTEONECROSIS OF JAW [None]
  - SPINAL OSTEOARTHRITIS [None]
  - DRY SKIN [None]
  - PULMONARY EMBOLISM [None]
  - HYPOKALAEMIA [None]
  - FATIGUE [None]
  - DEHYDRATION [None]
  - PAIN [None]
  - WEIGHT INCREASED [None]
  - VISION BLURRED [None]
  - SCOLIOSIS [None]
  - GASTROENTERITIS [None]
  - PANCYTOPENIA [None]
  - CARDIOMEGALY [None]
  - MULTIPLE MYELOMA [None]
  - OSTEOARTHRITIS [None]
  - ANXIETY [None]
  - HEADACHE [None]
  - SPINAL COLUMN STENOSIS [None]
  - HERPES ZOSTER [None]
  - HYPOAESTHESIA [None]
  - ATELECTASIS [None]
  - BONE NEOPLASM MALIGNANT [None]
  - INFECTION [None]
  - INSOMNIA [None]
  - PRURITUS GENERALISED [None]
  - ANAEMIA [None]
  - DRY MOUTH [None]
  - OSTEOPENIA [None]
  - COMPRESSION FRACTURE [None]
  - DEPRESSION [None]
  - PYREXIA [None]
  - NEUROPATHY PERIPHERAL [None]
  - LUNG NEOPLASM [None]
  - ISCHAEMIA [None]
  - FALL [None]
  - PELVIC HAEMATOMA [None]
  - DYSPNOEA [None]
  - CHRONIC OBSTRUCTIVE PULMONARY DISEASE [None]
  - PLEURAL FIBROSIS [None]
  - OSTEOPOROSIS [None]
  - CONFUSIONAL STATE [None]
  - ERYTHEMA [None]
  - CHEST PAIN [None]
  - GAIT DISTURBANCE [None]
  - NASAL CONGESTION [None]
  - CONSTIPATION [None]
  - OEDEMA PERIPHERAL [None]
  - RASH [None]
  - SCIATICA [None]
  - PLASMACYTOSIS [None]
  - PELVIC FRACTURE [None]
  - INTERVERTEBRAL DISC PROTRUSION [None]
